FAERS Safety Report 25015417 (Version 1)
Quarter: 2025Q1

REPORT INFORMATION
  Report Type: Spontaneous
  Country: CA (occurrence: CA)
  Receive Date: 20250227
  Receipt Date: 20250227
  Transmission Date: 20250409
  Serious: Yes (Death, Other)
  Sender: BRISTOL-MYERS SQUIBB COMPANY
  Company Number: CA-BRISTOL-MYERS SQUIBB COMPANY-2025-028892

PATIENT
  Age: 40 Year
  Sex: Female
  Weight: 96 kg

DRUGS (147)
  1. ORENCIA [Suspect]
     Active Substance: ABATACEPT
     Indication: Rheumatoid arthritis
  2. ACETAMINOPHEN [Concomitant]
     Active Substance: ACETAMINOPHEN
     Indication: Rheumatoid arthritis
  3. ACETAMINOPHEN [Concomitant]
     Active Substance: ACETAMINOPHEN
     Indication: Product used for unknown indication
  4. TRAMADOL HYDROCHLORIDE AND ACETAMINOPHEN [Concomitant]
     Active Substance: ACETAMINOPHEN\TRAMADOL HYDROCHLORIDE
     Indication: Product used for unknown indication
  5. ACTEMRA [Concomitant]
     Active Substance: TOCILIZUMAB
     Indication: Rheumatoid arthritis
     Route: 058
  6. ACTEMRA [Concomitant]
     Active Substance: TOCILIZUMAB
     Route: 042
  7. ACTEMRA [Concomitant]
     Active Substance: TOCILIZUMAB
  8. ACTEMRA [Concomitant]
     Active Substance: TOCILIZUMAB
  9. ACTEMRA [Concomitant]
     Active Substance: TOCILIZUMAB
     Route: 042
  10. ACTEMRA [Concomitant]
     Active Substance: TOCILIZUMAB
     Route: 058
  11. ACTEMRA [Concomitant]
     Active Substance: TOCILIZUMAB
  12. ACTEMRA [Concomitant]
     Active Substance: TOCILIZUMAB
     Route: 042
  13. ACTEMRA [Concomitant]
     Active Substance: TOCILIZUMAB
     Route: 042
  14. ACTEMRA [Concomitant]
     Active Substance: TOCILIZUMAB
     Route: 042
  15. ADALIMUMAB [Concomitant]
     Active Substance: ADALIMUMAB
     Indication: Rheumatoid arthritis
     Route: 058
  16. ADALIMUMAB [Concomitant]
     Active Substance: ADALIMUMAB
     Route: 058
  17. AIMOVIG [Concomitant]
     Active Substance: ERENUMAB-AOOE
     Indication: Migraine
  18. ALENDRONATE SODIUM [Concomitant]
     Active Substance: ALENDRONATE SODIUM
     Indication: Rheumatoid arthritis
  19. ALENDRONATE SODIUM\CHOLECALCIFEROL [Concomitant]
     Active Substance: ALENDRONATE SODIUM\CHOLECALCIFEROL
     Indication: Product used for unknown indication
  20. ALENDRONIC ACID [Concomitant]
     Active Substance: ALENDRONIC ACID
     Indication: Rheumatoid arthritis
  21. ALENDRONIC ACID [Concomitant]
     Active Substance: ALENDRONIC ACID
     Route: 048
  22. LEFLUNOMIDE [Concomitant]
     Active Substance: LEFLUNOMIDE
     Indication: Rheumatoid arthritis
  23. LEFLUNOMIDE [Concomitant]
     Active Substance: LEFLUNOMIDE
  24. LEFLUNOMIDE [Concomitant]
     Active Substance: LEFLUNOMIDE
     Route: 048
  25. PREDNISONE [Concomitant]
     Active Substance: PREDNISONE
     Indication: Rheumatoid arthritis
     Route: 048
  26. PREDNISONE [Concomitant]
     Active Substance: PREDNISONE
     Route: 048
  27. PREDNISONE [Concomitant]
     Active Substance: PREDNISONE
  28. PREDNISONE [Concomitant]
     Active Substance: PREDNISONE
     Route: 048
  29. PREDNISONE [Concomitant]
     Active Substance: PREDNISONE
  30. PREDNISONE [Concomitant]
     Active Substance: PREDNISONE
     Route: 048
  31. APREMILAST [Concomitant]
     Active Substance: APREMILAST
     Indication: Product used for unknown indication
  32. ARAVA [Concomitant]
     Active Substance: LEFLUNOMIDE
     Indication: Rheumatoid arthritis
     Route: 048
  33. ATOMOXETINE HYDROCHLORIDE [Concomitant]
     Active Substance: ATOMOXETINE HYDROCHLORIDE
     Indication: Migraine
  34. ATOMOXETINE HYDROCHLORIDE [Concomitant]
     Active Substance: ATOMOXETINE HYDROCHLORIDE
  35. AZATHIOPRINE SODIUM [Concomitant]
     Active Substance: AZATHIOPRINE SODIUM
     Indication: Rheumatoid arthritis
  36. BERINERT [Concomitant]
     Active Substance: HUMAN C1-ESTERASE INHIBITOR
     Indication: Product used for unknown indication
  37. BOTULINUM TOXIN TYPE A [Concomitant]
     Active Substance: BOTULINUM TOXIN TYPE A
     Indication: Product used for unknown indication
  38. BUTRANS [Concomitant]
     Active Substance: BUPRENORPHINE
     Indication: Product used for unknown indication
  39. CALCIUM ASCORBATE [Concomitant]
     Active Substance: CALCIUM ASCORBATE
     Indication: Product used for unknown indication
  40. CALCIUM CITRATE [Concomitant]
     Active Substance: CALCIUM CITRATE
     Indication: Product used for unknown indication
  41. CALCIUM GLUBIONATE [Concomitant]
     Active Substance: CALCIUM GLUBIONATE
     Indication: Product used for unknown indication
     Route: 016
  42. CANDESARTAN [Concomitant]
     Active Substance: CANDESARTAN
     Indication: Migraine
  43. CELEBREX [Concomitant]
     Active Substance: CELECOXIB
     Indication: Product used for unknown indication
  44. CELEBREX [Concomitant]
     Active Substance: CELECOXIB
     Route: 048
  45. CELEBREX [Concomitant]
     Active Substance: CELECOXIB
  46. CETIRIZINE HYDROCHLORIDE [Concomitant]
     Active Substance: CETIRIZINE HYDROCHLORIDE
     Indication: Rheumatoid arthritis
  47. CETIRIZINE HYDROCHLORIDE [Concomitant]
     Active Substance: CETIRIZINE HYDROCHLORIDE
     Route: 048
  48. CETIRIZINE HYDROCHLORIDE [Concomitant]
     Active Substance: CETIRIZINE HYDROCHLORIDE
  49. CETIRIZINE HYDROCHLORIDE [Concomitant]
     Active Substance: CETIRIZINE HYDROCHLORIDE
     Route: 048
  50. CETIRIZINE HYDROCHLORIDE [Concomitant]
     Active Substance: CETIRIZINE HYDROCHLORIDE
     Route: 048
  51. CETIRIZINE HYDROCHLORIDE [Concomitant]
     Active Substance: CETIRIZINE HYDROCHLORIDE
     Route: 048
  52. CHLORHEXIDINE GLUCONATE [Concomitant]
     Active Substance: CHLORHEXIDINE GLUCONATE
     Indication: Product used for unknown indication
  53. CIMZIA [Concomitant]
     Active Substance: CERTOLIZUMAB PEGOL
     Indication: Rheumatoid arthritis
     Route: 058
  54. CIMZIA [Concomitant]
     Active Substance: CERTOLIZUMAB PEGOL
     Indication: Psoriasis
     Route: 058
  55. CIMZIA [Concomitant]
     Active Substance: CERTOLIZUMAB PEGOL
     Route: 058
  56. CORTISONE (HYDROCORTISONE) [Concomitant]
     Active Substance: HYDROCORTISONE
     Indication: Product used for unknown indication
  57. CORTISONE ACETATE [Concomitant]
     Active Substance: CORTISONE ACETATE
     Indication: Rheumatoid arthritis
     Route: 048
  58. CORTISONE ACETATE [Concomitant]
     Active Substance: CORTISONE ACETATE
  59. CORTISONE ACETATE [Concomitant]
     Active Substance: CORTISONE ACETATE
     Route: 048
  60. CORTISONE ACETATE [Concomitant]
     Active Substance: CORTISONE ACETATE
     Route: 048
  61. COSENTYX [Concomitant]
     Active Substance: SECUKINUMAB
     Indication: Psoriatic arthropathy
  62. DESOXIMETASONE [Concomitant]
     Active Substance: DESOXIMETASONE
     Indication: Rheumatoid arthritis
     Route: 058
  63. DESOXIMETASONE [Concomitant]
     Active Substance: DESOXIMETASONE
     Route: 048
  64. DICLOFENAC DIETHYLAMINE [Concomitant]
     Active Substance: DICLOFENAC DIETHYLAMINE
     Indication: Product used for unknown indication
     Route: 058
  65. DICLOFENAC DIETHYLAMINE [Concomitant]
     Active Substance: DICLOFENAC DIETHYLAMINE
  66. DICLOFENAC SODIUM [Concomitant]
     Active Substance: DICLOFENAC SODIUM
     Indication: Product used for unknown indication
  67. DOMPERIDONE MALEATE [Concomitant]
     Active Substance: DOMPERIDONE MALEATE
     Indication: Product used for unknown indication
  68. ENBREL [Concomitant]
     Active Substance: ETANERCEPT
     Indication: Rheumatoid arthritis
  69. ENBREL [Concomitant]
     Active Substance: ETANERCEPT
     Route: 058
  70. ENBREL [Concomitant]
     Active Substance: ETANERCEPT
  71. ENBREL [Concomitant]
     Active Substance: ETANERCEPT
     Route: 058
  72. ENBREL [Concomitant]
     Active Substance: ETANERCEPT
     Route: 058
  73. ERELZI [Concomitant]
     Active Substance: ETANERCEPT-SZZS
     Indication: Product used for unknown indication
  74. FLUMETHASONE PIVALATE [Concomitant]
     Active Substance: FLUMETHASONE PIVALATE
     Indication: Product used for unknown indication
  75. FLUMETHASONE\SALICYLIC ACID [Concomitant]
     Active Substance: FLUMETHASONE\SALICYLIC ACID
     Indication: Product used for unknown indication
  76. FOLIC ACID [Concomitant]
     Active Substance: FOLIC ACID
     Indication: Rheumatoid arthritis
  77. FOLIC ACID [Concomitant]
     Active Substance: FOLIC ACID
     Route: 048
  78. FOLIC ACID [Concomitant]
     Active Substance: FOLIC ACID
     Route: 058
  79. FOLIC ACID [Concomitant]
     Active Substance: FOLIC ACID
     Route: 048
  80. FOLIC ACID [Concomitant]
     Active Substance: FOLIC ACID
     Route: 048
  81. FOLIC ACID [Concomitant]
     Active Substance: FOLIC ACID
     Route: 048
  82. FOLIC ACID [Concomitant]
     Active Substance: FOLIC ACID
     Route: 048
  83. FOLIC ACID [Concomitant]
     Active Substance: FOLIC ACID
  84. FOSAMAX [Concomitant]
     Active Substance: ALENDRONATE SODIUM
     Indication: Rheumatoid arthritis
     Route: 058
  85. FOSAMAX [Concomitant]
     Active Substance: ALENDRONATE SODIUM
     Route: 048
  86. FOSAMAX [Concomitant]
     Active Substance: ALENDRONATE SODIUM
     Route: 016
  87. HAIR KERATIN AMINO ACIDS GOLD COMPLEX [Concomitant]
     Active Substance: HAIR KERATIN AMINO ACIDS GOLD COMPLEX
     Indication: Product used for unknown indication
  88. GOLD SODIUM THIOMALATE [Concomitant]
     Active Substance: GOLD SODIUM THIOMALATE
     Indication: Product used for unknown indication
     Route: 030
  89. HUMIRA [Concomitant]
     Active Substance: ADALIMUMAB
     Indication: Rheumatoid arthritis
     Route: 058
  90. HUMIRA [Concomitant]
     Active Substance: ADALIMUMAB
  91. HUMIRA [Concomitant]
     Active Substance: ADALIMUMAB
     Route: 058
  92. HYDROXYCHLOROQUINE [Concomitant]
     Active Substance: HYDROXYCHLOROQUINE
     Indication: Rheumatoid arthritis
     Route: 058
  93. HYDROXYCHLOROQUINE [Concomitant]
     Active Substance: HYDROXYCHLOROQUINE
     Route: 048
  94. HYDROXYCHLOROQUINE [Concomitant]
     Active Substance: HYDROXYCHLOROQUINE
     Route: 048
  95. ISOPROPYL ALCOHOL [Concomitant]
     Active Substance: ISOPROPYL ALCOHOL
     Indication: Product used for unknown indication
     Route: 048
  96. ISOPROPYL ALCOHOL [Concomitant]
     Active Substance: ISOPROPYL ALCOHOL
     Route: 048
  97. ISOPROPYL ALCOHOL [Concomitant]
     Active Substance: ISOPROPYL ALCOHOL
     Route: 048
  98. LEFLUNOMIDE [Concomitant]
     Active Substance: LEFLUNOMIDE
     Indication: Rheumatoid arthritis
  99. LEFLUNOMIDE [Concomitant]
     Active Substance: LEFLUNOMIDE
  100. LEFLUNOMIDE [Concomitant]
     Active Substance: LEFLUNOMIDE
  101. MAGNESIUM CITRATE [Concomitant]
     Active Substance: MAGNESIUM CITRATE
     Indication: Product used for unknown indication
  102. METHOTREXATE [Concomitant]
     Active Substance: METHOTREXATE
     Indication: Rheumatoid arthritis
     Route: 048
  103. METHOTREXATE [Concomitant]
     Active Substance: METHOTREXATE
     Route: 048
  104. METHOTREXATE [Concomitant]
     Active Substance: METHOTREXATE
     Route: 058
  105. METHOTREXATE [Concomitant]
     Active Substance: METHOTREXATE
  106. METHYLPREDNISOLONE ACETATE [Concomitant]
     Active Substance: METHYLPREDNISOLONE ACETATE
     Indication: Product used for unknown indication
  107. METHYLPREDNISOLONE SODIUM SUCCINATE [Concomitant]
     Active Substance: METHYLPREDNISOLONE SODIUM SUCCINATE
     Indication: Product used for unknown indication
  108. MINOCYCLINE HYDROCHLORIDE [Concomitant]
     Active Substance: MINOCYCLINE HYDROCHLORIDE
     Indication: Rheumatoid arthritis
  109. MYOCHRYSINE [Concomitant]
     Active Substance: GOLD SODIUM THIOMALATE
     Indication: Rheumatoid arthritis
     Route: 030
  110. NAPROXEN [Concomitant]
     Active Substance: NAPROXEN
     Indication: Product used for unknown indication
  111. NAPROXEN SODIUM [Concomitant]
     Active Substance: NAPROXEN SODIUM
     Indication: Rheumatoid arthritis
  112. NICOTINAMIDE [Concomitant]
     Active Substance: NIACINAMIDE
     Indication: Product used for unknown indication
  113. NUCALA [Concomitant]
     Active Substance: MEPOLIZUMAB
     Indication: Product used for unknown indication
  114. OXYCODONE HYDROCHLORIDE [Concomitant]
     Active Substance: OXYCODONE HYDROCHLORIDE
     Indication: Product used for unknown indication
  115. PERIOGARD [Concomitant]
     Active Substance: CHLORHEXIDINE GLUCONATE
     Indication: Product used for unknown indication
     Route: 002
  116. PREDNISONE [Concomitant]
     Active Substance: PREDNISONE
     Indication: Rheumatoid arthritis
     Route: 048
  117. PSEUDOEPHEDRINE HYDROCHLORIDE [Concomitant]
     Active Substance: PSEUDOEPHEDRINE HYDROCHLORIDE
     Indication: Rheumatoid arthritis
  118. RAMIPRIL [Concomitant]
     Active Substance: RAMIPRIL
     Indication: Rheumatoid arthritis
     Route: 042
  119. CETIRIZINE HYDROCHLORIDE\PSEUDOEPHEDRINE HYDROCHLORIDE [Concomitant]
     Active Substance: CETIRIZINE HYDROCHLORIDE\PSEUDOEPHEDRINE HYDROCHLORIDE
     Indication: Rheumatoid arthritis
  120. CETIRIZINE HYDROCHLORIDE\PSEUDOEPHEDRINE HYDROCHLORIDE [Concomitant]
     Active Substance: CETIRIZINE HYDROCHLORIDE\PSEUDOEPHEDRINE HYDROCHLORIDE
     Route: 042
  121. CETIRIZINE HYDROCHLORIDE\PSEUDOEPHEDRINE HYDROCHLORIDE [Concomitant]
     Active Substance: CETIRIZINE HYDROCHLORIDE\PSEUDOEPHEDRINE HYDROCHLORIDE
     Route: 042
  122. REMICADE [Concomitant]
     Active Substance: INFLIXIMAB
     Indication: Rheumatoid arthritis
     Route: 058
  123. REMICADE [Concomitant]
     Active Substance: INFLIXIMAB
     Route: 042
  124. REMICADE [Concomitant]
     Active Substance: INFLIXIMAB
     Route: 042
  125. REMICADE [Concomitant]
     Active Substance: INFLIXIMAB
     Route: 042
  126. RITUXIMAB [Concomitant]
     Active Substance: RITUXIMAB
     Indication: Rheumatoid arthritis
  127. RITUXIMAB [Concomitant]
     Active Substance: RITUXIMAB
     Route: 042
  128. RITUXIMAB [Concomitant]
     Active Substance: RITUXIMAB
  129. RITUXIMAB [Concomitant]
     Active Substance: RITUXIMAB
     Route: 058
  130. RITUXIMAB [Concomitant]
     Active Substance: RITUXIMAB
  131. RITUXIMAB [Concomitant]
     Active Substance: RITUXIMAB
     Route: 043
  132. SIMPONI [Concomitant]
     Active Substance: GOLIMUMAB
     Indication: Rheumatoid arthritis
     Route: 058
  133. SIMPONI [Concomitant]
     Active Substance: GOLIMUMAB
     Route: 058
  134. STELARA [Concomitant]
     Active Substance: USTEKINUMAB
     Indication: Product used for unknown indication
  135. STELARA [Concomitant]
     Active Substance: USTEKINUMAB
  136. SULFASALAZINE [Concomitant]
     Active Substance: SULFASALAZINE
     Indication: Rheumatoid arthritis
  137. SULFASALAZINE [Concomitant]
     Active Substance: SULFASALAZINE
  138. SULFASALAZINE [Concomitant]
     Active Substance: SULFASALAZINE
  139. SULFASALAZINE [Concomitant]
     Active Substance: SULFASALAZINE
  140. SULFASALAZINE [Concomitant]
     Active Substance: SULFASALAZINE
     Route: 058
  141. SULFASALAZINE [Concomitant]
     Active Substance: SULFASALAZINE
     Route: 048
  142. TOPAMAX [Concomitant]
     Active Substance: TOPIRAMATE
     Indication: Product used for unknown indication
  143. TOPAMAX [Concomitant]
     Active Substance: TOPIRAMATE
  144. VITAMIN C [Concomitant]
     Active Substance: ASCORBIC ACID
     Indication: Product used for unknown indication
  145. VITAMIN C [Concomitant]
     Active Substance: ASCORBIC ACID
  146. XELJANZ [Concomitant]
     Active Substance: TOFACITINIB CITRATE
     Indication: Rheumatoid arthritis
     Route: 048
  147. XELJANZ [Concomitant]
     Active Substance: TOFACITINIB CITRATE
     Route: 048

REACTIONS (1)
  - Death [Fatal]
